FAERS Safety Report 5453524-2 (Version None)
Quarter: 2007Q3

REPORT INFORMATION
  Report Type: 
  Country: None (occurrence: None)
  Receive Date: 20070913
  Receipt Date: 20070829
  Transmission Date: 20080115
  Serious: Yes (Death, Life-Threatening)
  Sender: FDA-Public Use
  Company Number: 2007RR-09701

PATIENT
  Age: 32 Year
  Sex: Male

DRUGS (6)
  1. AMLODIPINE RANBAXY 5MG TABLETTER (AMLODIPINE) UNKNOWN [Suspect]
     Indication: HYPERTENSION
  2. ENALAPRIL MALEATE TABLETS 2.5MG (ENALAPRIL) UNKNOWN [Suspect]
     Indication: HYPERTENSION
  3. ACYCLOVIR SODIUM [Concomitant]
  4. INSULIN (INSULIN) [Concomitant]
  5. METHYLPREDNISOLONE [Concomitant]
  6. PHENYTOIN [Concomitant]

REACTIONS (16)
  - BRAIN OEDEMA [None]
  - BRAIN STEM SYNDROME [None]
  - CONDITION AGGRAVATED [None]
  - CONFUSIONAL STATE [None]
  - DEPRESSED LEVEL OF CONSCIOUSNESS [None]
  - GENERAL PHYSICAL HEALTH DETERIORATION [None]
  - GRIMACING [None]
  - HYPERHIDROSIS [None]
  - HYPERREFLEXIA [None]
  - HYPERTENSION [None]
  - MUSCLE SPASMS [None]
  - MUSCLE SPASTICITY [None]
  - SINUS TACHYCARDIA [None]
  - TACHYPNOEA [None]
  - TRISMUS [None]
  - URINARY INCONTINENCE [None]
